FAERS Safety Report 18082623 (Version 1)
Quarter: 2020Q3

REPORT INFORMATION
  Report Type: Other
  Country: US (occurrence: US)
  Receive Date: 20200728
  Receipt Date: 20200728
  Transmission Date: 20201103
  Serious: Yes (Hospitalization)
  Sender: FDA-Public Use
  Company Number: US-ROCHE-2645251

PATIENT
  Sex: Female
  Weight: 58.2 kg

DRUGS (13)
  1. ARIMIDEX [Concomitant]
     Active Substance: ANASTROZOLE
  2. CELEXA [Concomitant]
     Active Substance: CITALOPRAM HYDROBROMIDE
  3. ZOCOR [Concomitant]
     Active Substance: SIMVASTATIN
  4. XELODA [Suspect]
     Active Substance: CAPECITABINE
     Indication: BREAST CANCER FEMALE
     Dosage: 3 TABLETS TWICE A DAY 2 WEEKS ON, 1 WEEK OFF
     Route: 048
     Dates: start: 20200511
  5. PROTONIX [Concomitant]
     Active Substance: PANTOPRAZOLE SODIUM
  6. FLONASE [Concomitant]
     Active Substance: FLUTICASONE PROPIONATE
  7. XELODA [Suspect]
     Active Substance: CAPECITABINE
     Indication: METASTASES TO BONE
  8. XELODA [Suspect]
     Active Substance: CAPECITABINE
     Indication: METASTASES TO OVARY
  9. NORCO [Concomitant]
     Active Substance: ACETAMINOPHEN\HYDROCODONE BITARTRATE
  10. WARFARIN [Concomitant]
     Active Substance: WARFARIN
  11. WELLBUTRIN [Concomitant]
     Active Substance: BUPROPION HYDROCHLORIDE
  12. XELODA [Suspect]
     Active Substance: CAPECITABINE
     Indication: METASTASES TO OVARY
  13. DITROPAN [Concomitant]
     Active Substance: OXYBUTYNIN CHLORIDE

REACTIONS (3)
  - Haemorrhage [Unknown]
  - Infection [Unknown]
  - Ill-defined disorder [Unknown]
